FAERS Safety Report 8974572 (Version 1)
Quarter: 2012Q4

REPORT INFORMATION
  Report Type: Report from Study
  Country: FR (occurrence: FR)
  Receive Date: 20121220
  Receipt Date: 20121220
  Transmission Date: 20130627
  Serious: Yes (Hospitalization)
  Sender: FDA-Public Use
  Company Number: FR-ABBOTT-12P-056-1019590-00

PATIENT
  Age: 53 Year
  Sex: Female
  Weight: 106 kg

DRUGS (9)
  1. LIPANTHYL [Suspect]
     Indication: PRODUCT USED FOR UNKNOWN INDICATION
     Route: 065
  2. TOCILIZUMAB [Suspect]
     Indication: RHEUMATOID ARTHRITIS
     Dosage: Form: LIQUID INFUSION. UNITS: 8 MG/KG
     Route: 042
     Dates: start: 20081104, end: 20090630
  3. BISOPROLOL [Concomitant]
     Indication: PRODUCT USED FOR UNKNOWN INDICATION
  4. LEFLUNOMIDE [Concomitant]
     Indication: PRODUCT USED FOR UNKNOWN INDICATION
  5. MICARDIS [Concomitant]
     Indication: PRODUCT USED FOR UNKNOWN INDICATION
     Dosage: DOSE ILLEGIBLE
  6. CORTANCYL [Concomitant]
     Indication: PRODUCT USED FOR UNKNOWN INDICATION
  7. SIFROL [Concomitant]
     Indication: PRODUCT USED FOR UNKNOWN INDICATION
  8. LAMALINE [Concomitant]
     Indication: PRODUCT USED FOR UNKNOWN INDICATION
  9. SULFARLEM [Concomitant]
     Indication: PRODUCT USED FOR UNKNOWN INDICATION
     Dosage: TOTAL DAILY DOSE: 25 X 3

REACTIONS (1)
  - Tendonitis [Recovered/Resolved with Sequelae]
